FAERS Safety Report 7673063-8 (Version None)
Quarter: 2011Q3

REPORT INFORMATION
  Report Type: 
  Country: None (occurrence: None)
  Receive Date: 20110809
  Receipt Date: 20110801
  Transmission Date: 20111222
  Serious: Yes (Hospitalization)
  Sender: FDA-Public Use
  Company Number: KR-BRISTOL-MYERS SQUIBB COMPANY-15413164

PATIENT
  Age: 46 Year
  Sex: Female
  Weight: 58 kg

DRUGS (3)
  1. XELODA [Suspect]
     Indication: GASTROOESOPHAGEAL CANCER
     Dosage: ON DAY 1-15 RECENT INF:15NOV2010
     Route: 048
     Dates: start: 20100831, end: 20101115
  2. CETUXIMAB [Suspect]
     Indication: GASTROOESOPHAGEAL CANCER
     Dosage: STRENGTH:5MG/ML RECENT INF:09NOV2010; NO OF INF:10
     Route: 042
     Dates: start: 20100831, end: 20101109
  3. CISPLATIN [Suspect]
     Indication: GASTROOESOPHAGEAL CANCER
     Dosage: ON DAY 1 OF CYCLE RECENT INF:09NOV2010
     Route: 042
     Dates: start: 20100831, end: 20101109

REACTIONS (4)
  - PULMONARY EMBOLISM [None]
  - HYDRONEPHROSIS [None]
  - DYSPNOEA [None]
  - SEPTIC SHOCK [None]
